FAERS Safety Report 7437882-5 (Version None)
Quarter: 2011Q2

REPORT INFORMATION
  Report Type: 
  Country: None (occurrence: None)
  Receive Date: 20110421
  Receipt Date: 20110421
  Transmission Date: 20111010
  Serious: Yes (Hospitalization)
  Sender: FDA-Public Use
  Company Number: None

PATIENT
  Age: 42 Year
  Sex: Male
  Weight: 95.5 kg

DRUGS (2)
  1. BUPROPION HCL [Suspect]
     Indication: SMOKING CESSATION THERAPY
     Dates: start: 20101020, end: 20101114
  2. BUPROPION HCL [Suspect]
     Indication: DEPRESSION
     Dates: start: 20101020, end: 20101114

REACTIONS (2)
  - HAEMORRHAGE INTRACRANIAL [None]
  - CONVULSION [None]
